FAERS Safety Report 22019654 (Version 14)
Quarter: 2024Q4

REPORT INFORMATION
  Report Type: Report from Study
  Country: CO (occurrence: CO)
  Receive Date: 20230222
  Receipt Date: 20241209
  Transmission Date: 20250115
  Serious: Yes (Hospitalization, Other)
  Sender: NOVARTIS
  Company Number: CO-002147023-NVSC2022CO196717

PATIENT
  Sex: Female
  Weight: 72 kg

DRUGS (9)
  1. GILENYA [Suspect]
     Active Substance: FINGOLIMOD HYDROCHLORIDE
     Indication: Multiple sclerosis
     Dosage: UNK
     Route: 048
     Dates: start: 2020
  2. GILENYA [Suspect]
     Active Substance: FINGOLIMOD HYDROCHLORIDE
     Dosage: 0.5 MG, QD
     Route: 048
     Dates: start: 20200429
  3. GILENYA [Suspect]
     Active Substance: FINGOLIMOD HYDROCHLORIDE
     Dosage: 0.5 MG, QD
     Route: 048
     Dates: start: 20211201
  4. GILENYA [Suspect]
     Active Substance: FINGOLIMOD HYDROCHLORIDE
     Dosage: UNK
     Route: 048
     Dates: end: 20240325
  5. GILENYA [Suspect]
     Active Substance: FINGOLIMOD HYDROCHLORIDE
     Dosage: 0.5 MG, QD
     Route: 048
     Dates: start: 20240429
  6. LOSARTAN [Concomitant]
     Active Substance: LOSARTAN
     Indication: Blood pressure abnormal
     Dosage: 50 MG, QD
     Route: 065
  7. LOVASTATIN [Concomitant]
     Active Substance: LOVASTATIN
     Indication: Blood cholesterol abnormal
     Dosage: 20 MG, BID (ONE IN THE MORNING AND 1 IN THE EVENING)
     Route: 065
  8. FLUOXETINE [Concomitant]
     Active Substance: FLUOXETINE HYDROCHLORIDE
     Indication: Anxiety
     Dosage: 20 MG
     Route: 065
  9. FLUOXETINE [Concomitant]
     Active Substance: FLUOXETINE HYDROCHLORIDE
     Indication: Depression

REACTIONS (16)
  - Illness [Unknown]
  - Mobility decreased [Unknown]
  - Paralysis [Unknown]
  - Cardiac disorder [Unknown]
  - Spinal disorder [Unknown]
  - Refraction disorder [Unknown]
  - Bronchitis [Recovering/Resolving]
  - Gait disturbance [Unknown]
  - Mental disorder [Unknown]
  - Gait inability [Unknown]
  - Hypoaesthesia [Unknown]
  - Product distribution issue [Unknown]
  - Spinal pain [Unknown]
  - Limb discomfort [Not Recovered/Not Resolved]
  - Dwarfism [Unknown]
  - Paraesthesia [Not Recovered/Not Resolved]

NARRATIVE: CASE EVENT DATE: 20200101
